FAERS Safety Report 5151501-2 (Version None)
Quarter: 2006Q4

REPORT INFORMATION
  Report Type: 
  Country: None (occurrence: None)
  Receive Date: 20061115
  Receipt Date: 20061109
  Transmission Date: 20070319
  Serious: Yes (Hospitalization, Other)
  Sender: FDA-Public Use
  Company Number: 2006UW23382

PATIENT
  Age: 65 Year
  Sex: Female
  Weight: 73 kg

DRUGS (6)
  1. CRESTOR [Suspect]
     Indication: BLOOD CHOLESTEROL INCREASED
     Route: 048
     Dates: start: 20040101
  2. FLAGYL [Concomitant]
  3. DILANTIN [Concomitant]
  4. CRESTOR [Concomitant]
     Route: 048
  5. PAXIL [Concomitant]
  6. ANTIBIOTICS [Concomitant]

REACTIONS (6)
  - ACUTE HEPATIC FAILURE [None]
  - ALANINE AMINOTRANSFERASE INCREASED [None]
  - ASPARTATE AMINOTRANSFERASE INCREASED [None]
  - BRAIN ABSCESS [None]
  - CONVULSION [None]
  - YELLOW SKIN [None]
